FAERS Safety Report 18049577 (Version 2)
Quarter: 2020Q4

REPORT INFORMATION
  Report Type: Spontaneous
  Country: BG (occurrence: BG)
  Receive Date: 20200721
  Receipt Date: 20201021
  Transmission Date: 20210113
  Serious: Yes (Other)
  Sender: FDA-Public Use
  Company Number: BG-ELI_LILLY_AND_COMPANY-BG202007003930

PATIENT
  Sex: Male

DRUGS (3)
  1. IXEKIZUMAB [Suspect]
     Active Substance: IXEKIZUMAB
     Indication: PSORIASIS
     Dosage: 160 MG, STARTER DOSE
     Route: 065
  2. IXEKIZUMAB [Suspect]
     Active Substance: IXEKIZUMAB
     Dosage: 80 MG, EVERY 28 DAYS
     Route: 065
  3. IXEKIZUMAB [Suspect]
     Active Substance: IXEKIZUMAB
     Dosage: 80 MG, EVERY TWO WEEKS
     Route: 065

REACTIONS (1)
  - Prostate cancer [Unknown]
